FAERS Safety Report 8983997 (Version 1)
Quarter: 2012Q4

REPORT INFORMATION
  Report Type: Spontaneous
  Country: US (occurrence: None)
  Receive Date: 20121218
  Receipt Date: 20121218
  Transmission Date: 20130627
  Serious: Yes (Hospitalization)
  Sender: FDA-Public Use
  Company Number: None

PATIENT
  Age: 77 Year
  Sex: Female
  Weight: 80.28 kg

DRUGS (1)
  1. FLAGYL [Suspect]
     Indication: DIVERTICULITIS
     Route: 048
     Dates: start: 20121203, end: 20121209

REACTIONS (7)
  - Headache [None]
  - Confusional state [None]
  - Asthenia [None]
  - Vision blurred [None]
  - Meningitis aseptic [None]
  - CSF glucose increased [None]
  - CSF protein increased [None]
